FAERS Safety Report 9507383 (Version 1)
Quarter: 2013Q3

REPORT INFORMATION
  Report Type: Spontaneous
  Country: US (occurrence: None)
  Receive Date: 20130904
  Receipt Date: 20130904
  Transmission Date: 20140515
  Serious: Yes (Hospitalization, Other)
  Sender: FDA-Public Use
  Company Number: ASR-2013-01530

PATIENT
  Age: 12 Year
  Sex: Male

DRUGS (4)
  1. BACLOFEN INTRATHECAL [Suspect]
     Indication: MUSCLE SPASTICITY
     Dosage: SEE B5
     Dates: start: 2008
  2. DEFERIPRONE [Suspect]
     Indication: CHELATION THERAPY
     Dosage: SEE B5
     Dates: start: 2009
  3. ORAL BACLOFEN (10 MG) [Concomitant]
  4. DIAZEPAM (4 MG) [Concomitant]

REACTIONS (1)
  - Neurodegenerative disorder [None]
